FAERS Safety Report 7065327-6 (Version None)
Quarter: 2010Q4

REPORT INFORMATION
  Report Type: 
  Country: None (occurrence: None)
  Receive Date: 20101027
  Receipt Date: 20101019
  Transmission Date: 20110411
  Serious: Yes (Other)
  Sender: FDA-Public Use
  Company Number: US-ROCHE-724563

PATIENT
  Sex: Male
  Weight: 71 kg

DRUGS (7)
  1. CAPECITABINE [Suspect]
     Route: 048
     Dates: start: 20100630, end: 20100825
  2. CAPECITABINE [Suspect]
     Route: 048
     Dates: start: 20100826
  3. OXALIPLATIN [Suspect]
     Route: 042
     Dates: start: 20091202, end: 20100303
  4. METHADONE [Concomitant]
     Dosage: HEROIN ADDICTION
     Route: 048
  5. MORPHINE SULFATE [Concomitant]
     Indication: PAIN
     Route: 048
  6. ADVAIR DISKUS 100/50 [Concomitant]
  7. ZOFRAN [Concomitant]
     Indication: NAUSEA
     Route: 048

REACTIONS (5)
  - MUSCULOSKELETAL PAIN [None]
  - NERVE INJURY [None]
  - NEUROPATHY PERIPHERAL [None]
  - PALMAR ERYTHEMA [None]
  - SKIN DISCOLOURATION [None]
